FAERS Safety Report 9640674 (Version 4)
Quarter: 2014Q3

REPORT INFORMATION
  Report Type: Report from Study
  Country: CZ (occurrence: CZ)
  Receive Date: 20131023
  Receipt Date: 20140828
  Transmission Date: 20150326
  Serious: Yes (Hospitalization, Other)
  Sender: FDA-Public Use
  Company Number: CZ-ASTRAZENECA-2013SE69306

PATIENT
  Age: 25722 Day
  Sex: Female

DRUGS (11)
  1. MODURETIC 5-50 [Concomitant]
     Active Substance: AMILORIDE HYDROCHLORIDE\HYDROCHLOROTHIAZIDE
     Indication: HYPERTENSION
     Route: 048
  2. HELICID [Concomitant]
     Indication: PROPHYLAXIS AGAINST GASTROINTESTINAL ULCER
     Route: 048
  3. AZD6140 [Suspect]
     Active Substance: TICAGRELOR
     Indication: CORONARY ARTERY DISEASE
     Route: 048
     Dates: start: 20110601, end: 20130906
  4. GANATON [Concomitant]
     Active Substance: ITOPRIDE
     Indication: DYSPEPSIA
     Route: 048
     Dates: end: 20130604
  5. AGEN [Concomitant]
     Indication: HYPERTENSION
     Route: 048
  6. EUTHYROX [Concomitant]
     Active Substance: LEVOTHYROXINE SODIUM
     Indication: HYPOTHYROIDISM
     Route: 048
  7. ASA [Concomitant]
     Active Substance: ASPIRIN
     Route: 048
     Dates: end: 20130906
  8. PRESTARIUM NEO [Concomitant]
     Indication: CORONARY ARTERY DISEASE
     Route: 048
  9. SORTIS [Concomitant]
     Active Substance: ATORVASTATIN
     Indication: HYPERLIPIDAEMIA
     Route: 048
  10. ASA [Concomitant]
     Active Substance: ASPIRIN
     Route: 048
     Dates: start: 20130916
  11. SECTRAL [Concomitant]
     Active Substance: ACEBUTOLOL HYDROCHLORIDE
     Indication: CORONARY ARTERY DISEASE
     Route: 048

REACTIONS (1)
  - Enterocolitis haemorrhagic [Recovered/Resolved]

NARRATIVE: CASE EVENT DATE: 20130905
